FAERS Safety Report 10417089 (Version 2)
Quarter: 2014Q4

REPORT INFORMATION
  Report Type: Spontaneous
  Country: AU (occurrence: AU)
  Receive Date: 20140828
  Receipt Date: 20141017
  Transmission Date: 20150528
  Serious: Yes (Other)
  Sender: FDA-Public Use
  Company Number: AU-PFIZER INC-2014238357

PATIENT
  Age: 74 Year
  Sex: Male

DRUGS (4)
  1. OLANZAPINE. [Concomitant]
     Active Substance: OLANZAPINE
     Dosage: 10 MG, 1X/DAY NIGHTLY
  2. OLANZAPINE. [Concomitant]
     Active Substance: OLANZAPINE
     Dosage: 12.5 MG, 1X/DAY AT NIGHT
  3. LYRICA [Suspect]
     Active Substance: PREGABALIN
     Indication: NEURALGIA
     Dosage: 75 MG, AT NIGHT
     Route: 048
     Dates: start: 20140430, end: 20140812
  4. LYRICA [Suspect]
     Active Substance: PREGABALIN
     Indication: PLANTAR FASCIITIS
     Dosage: 150 MG, AT NIGHT
     Route: 048
     Dates: start: 20140813

REACTIONS (6)
  - Speech disorder [Recovering/Resolving]
  - Product use issue [Unknown]
  - Paranoia [Recovering/Resolving]
  - Irritability [Recovering/Resolving]
  - Disease progression [Recovering/Resolving]
  - Hallucination, auditory [Unknown]

NARRATIVE: CASE EVENT DATE: 20140430
